FAERS Safety Report 4694763-8 (Version None)
Quarter: 2005Q2

REPORT INFORMATION
  Report Type: 
  Country: None (occurrence: None)
  Receive Date: 20050617
  Receipt Date: 20050609
  Transmission Date: 20051028
  Serious: No
  Sender: FDA-Public Use
  Company Number: 2005-05-1371

PATIENT
  Age: 29 Year
  Sex: Female
  Weight: 64.8644 kg

DRUGS (4)
  1. CLARITIN-D [Suspect]
     Indication: EYE PRURITUS
     Dosage: 1 TAB QD ORAL
     Route: 048
     Dates: start: 20050515, end: 20050517
  2. CLARITIN-D [Suspect]
     Indication: SEASONAL ALLERGY
     Dosage: 1 TAB QD ORAL
     Route: 048
     Dates: start: 20050515, end: 20050517
  3. CLARITIN-D [Suspect]
     Indication: SNEEZING
     Dosage: 1 TAB QD ORAL
     Route: 048
     Dates: start: 20050515, end: 20050517
  4. TOPAMAX [Suspect]
     Dosage: ORAL
     Route: 048

REACTIONS (1)
  - DIZZINESS [None]
